FAERS Safety Report 12271203 (Version 4)
Quarter: 2016Q2

REPORT INFORMATION
  Report Type: Spontaneous
  Country: IR (occurrence: IR)
  Receive Date: 20160415
  Receipt Date: 20160527
  Transmission Date: 20160815
  Serious: Yes (Hospitalization)
  Sender: FDA-Public Use
  Company Number: IR-SUN PHARMACEUTICAL INDUSTRIES LTD-2016RR-114843

PATIENT
  Age: 23 Year
  Sex: Male

DRUGS (1)
  1. TRAMADOL. [Suspect]
     Active Substance: TRAMADOL
     Indication: PREMATURE EJACULATION
     Dosage: 200 MG, UNK
     Route: 048
     Dates: start: 20150725

REACTIONS (5)
  - Rhabdomyolysis [Recovered/Resolved]
  - Prescription drug used without a prescription [Unknown]
  - Serotonin syndrome [Recovering/Resolving]
  - Renal impairment [Recovered/Resolved]
  - Hepatic enzyme increased [Unknown]

NARRATIVE: CASE EVENT DATE: 20150725
